FAERS Safety Report 9270884 (Version 2)
Quarter: 2013Q4

REPORT INFORMATION
  Report Type: Spontaneous
  Country: US (occurrence: US)
  Receive Date: 20130503
  Receipt Date: 20131003
  Transmission Date: 20140711
  Serious: Yes (Hospitalization)
  Sender: FDA-Public Use
  Company Number: US-B.I. PHARMACEUTICALS,INC./RIDGEFIELD-2013-BI-12332BP

PATIENT
  Age: 65 Year
  Sex: Male
  Weight: 74.84 kg

DRUGS (5)
  1. PRADAXA [Suspect]
     Indication: ANTICOAGULANT THERAPY
     Dosage: 300 MG
     Dates: start: 20110104
  2. PRADAXA [Suspect]
     Indication: ATRIAL FIBRILLATION
  3. FLOMAX [Concomitant]
     Dosage: 0.4 MG
  4. PROZAC [Concomitant]
     Dosage: 20 MG
  5. VITAMIN D [Concomitant]
     Dosage: 5000 U

REACTIONS (1)
  - Lower gastrointestinal haemorrhage [Recovered/Resolved]
